FAERS Safety Report 6473393-1 (Version None)
Quarter: 2009Q4

REPORT INFORMATION
  Report Type: 
  Country: None (occurrence: None)
  Receive Date: 20091204
  Receipt Date: 20090512
  Transmission Date: 20100525
  Serious: Yes (Hospitalization, Other)
  Sender: FDA-Public Use
  Company Number: BR-ELI_LILLY_AND_COMPANY-BR200811005820

PATIENT
  Sex: Female
  Weight: 62 kg

DRUGS (9)
  1. FORTEO [Suspect]
     Indication: OSTEOPOROSIS
     Dosage: 20 UG, DAILY (1/D)
     Route: 058
     Dates: start: 20080101, end: 20090301
  2. URSACOL [Concomitant]
     Indication: RENAL DISORDER
     Dosage: 300 MG, DAILY (1/D)
     Route: 048
  3. IMURAN [Concomitant]
     Indication: LIVER DISORDER
     Dosage: 100 MG, DAILY (1/D)
     Route: 048
  4. METICORTEN [Concomitant]
     Indication: LIVER DISORDER
     Dosage: 5 MG, DAILY (1/D)
     Route: 048
  5. ALDACTONE [Concomitant]
     Indication: BLOOD PRESSURE
     Dosage: 25 MG, DAILY (1/D)
     Route: 048
  6. PLAVIX [Concomitant]
     Indication: CARDIAC DISORDER
     Dosage: 75 MG, QOD
     Route: 065
  7. DAONIL [Concomitant]
     Indication: DIABETES MELLITUS
     Dosage: 5 MG, DAILY (1/D)
     Route: 048
  8. NOVOLIN [Concomitant]
     Indication: DIABETES MELLITUS
     Dosage: 20 IU, DAILY (1/D)
     Route: 058
  9. OSCAL D [Concomitant]
     Indication: OSTEOPOROSIS
     Dosage: UNK, DAILY (1/D)
     Route: 048

REACTIONS (4)
  - BACK PAIN [None]
  - MULTIPLE MYELOMA [None]
  - SPINAL COMPRESSION FRACTURE [None]
  - SPINAL FRACTURE [None]
